FAERS Safety Report 11362863 (Version 1)
Quarter: 2015Q3

REPORT INFORMATION
  Report Type: Spontaneous
  Country: US (occurrence: None)
  Receive Date: 20150807
  Receipt Date: 20150807
  Transmission Date: 20151125
  Serious: Yes (Hospitalization)
  Sender: FDA-Public Use
  Company Number: None

PATIENT
  Age: 72 Year
  Sex: Male
  Weight: 100 kg

DRUGS (2)
  1. REGADENOSON [Suspect]
     Active Substance: REGADENOSON
     Indication: CARDIOVASCULAR DISORDER
     Route: 042
     Dates: start: 20090930, end: 20090930
  2. REGADENOSON [Suspect]
     Active Substance: REGADENOSON
     Indication: SURGERY
     Route: 042
     Dates: start: 20090930, end: 20090930

REACTIONS (7)
  - Nausea [None]
  - Monoplegia [None]
  - Chest pain [None]
  - Anxiety [None]
  - Visual impairment [None]
  - Dyspnoea [None]
  - Paraesthesia [None]

NARRATIVE: CASE EVENT DATE: 20090930
